FAERS Safety Report 17141295 (Version 5)
Quarter: 2020Q4

REPORT INFORMATION
  Report Type: Spontaneous
  Country: US (occurrence: US)
  Receive Date: 20191211
  Receipt Date: 20201009
  Transmission Date: 20210113
  Serious: Yes (Other)
  Sender: FDA-Public Use
  Company Number: US-PFIZER INC-2019533847

PATIENT
  Age: 70 Year
  Sex: Male
  Weight: 90.72 kg

DRUGS (2)
  1. VYNDAQEL [Suspect]
     Active Substance: TAFAMIDIS MEGLUMINE
     Indication: AMYLOIDOSIS
     Dosage: 80 MG, DAILY (20 MG X 4 CAPSULES)
     Route: 048
     Dates: start: 201907, end: 20200908
  2. VYNDAQEL [Suspect]
     Active Substance: TAFAMIDIS MEGLUMINE
     Indication: CARDIAC AMYLOIDOSIS
     Dosage: UNK
     Route: 048
     Dates: start: 20200916

REACTIONS (18)
  - Back pain [Unknown]
  - Fatigue [Unknown]
  - Night sweats [Unknown]
  - Joint stiffness [Unknown]
  - Neuropathy peripheral [Unknown]
  - Fine motor skill dysfunction [Unknown]
  - Orthopnoea [Unknown]
  - Peripheral swelling [Unknown]
  - Headache [Unknown]
  - Productive cough [Unknown]
  - Muscular weakness [Unknown]
  - Atrial flutter [Unknown]
  - Dyspnoea [Unknown]
  - Arthralgia [Unknown]
  - Dizziness [Unknown]
  - Product dose omission issue [Recovered/Resolved]
  - Sinus congestion [Unknown]
  - Pollakiuria [Unknown]

NARRATIVE: CASE EVENT DATE: 20200909
